FAERS Safety Report 19891321 (Version 1)
Quarter: 2021Q3

REPORT INFORMATION
  Report Type: Report from Study
  Country: CA (occurrence: CA)
  Receive Date: 20210928
  Receipt Date: 20210928
  Transmission Date: 20211014
  Serious: Yes (Hospitalization)
  Sender: FDA-Public Use
  Company Number: CA-ROCHE-2827782

PATIENT
  Age: 55 Year
  Sex: Male
  Weight: 78 kg

DRUGS (30)
  1. BACLOFEN. [Concomitant]
     Active Substance: BACLOFEN
     Dates: start: 20180511, end: 20180517
  2. BACLOFEN. [Concomitant]
     Active Substance: BACLOFEN
     Dates: start: 20190927, end: 20210510
  3. BETAHISTINE [Concomitant]
     Active Substance: BETAHISTINE
     Indication: ASTHENIA
     Dates: start: 20150115, end: 20150115
  4. VANCOMYCIN [Concomitant]
     Active Substance: VANCOMYCIN
     Dates: start: 20210501, end: 20210501
  5. VITAMIN C [Concomitant]
     Active Substance: ASCORBIC ACID
     Indication: PROPHYLAXIS
     Dates: start: 20210101
  6. LEVOFLOXACIN. [Concomitant]
     Active Substance: LEVOFLOXACIN
     Dates: start: 20210709, end: 20210722
  7. BETAHISTINE [Concomitant]
     Active Substance: BETAHISTINE
     Indication: VERTIGO
     Dates: start: 20150116, end: 20150118
  8. CITALOPRAM HYDROBROMIDE. [Concomitant]
     Active Substance: CITALOPRAM HYDROBROMIDE
     Dates: start: 20181116
  9. OCRELIZUMAB. [Suspect]
     Active Substance: OCRELIZUMAB
     Dosage: SUBSEQUENT DOSE: 24/NOV/2017(570 ML), 26/SEP/2019(570 ML), 05/MAR/2021(570ML)
     Route: 042
     Dates: start: 20170623
  10. METHYLPREDNISOLONE. [Concomitant]
     Active Substance: METHYLPREDNISOLONE
     Indication: PREMEDICATION
     Dosage: SUBSEQUENT DOSE ON: 28/MAY/2012, 31/OCT/2012 , 16/NOV/2012, 26/APR/2013, 10/MAY/2013, 11/OCT/2013, 2
     Dates: start: 20120512
  11. PANTOPRAZOLE [Concomitant]
     Active Substance: PANTOPRAZOLE
     Dates: start: 20210514, end: 20210527
  12. OCRELIZUMAB. [Suspect]
     Active Substance: OCRELIZUMAB
     Indication: PRIMARY PROGRESSIVE MULTIPLE SCLEROSIS
     Dosage: SUBSEQUENT DOSE ON: 28/MAY/2012, 31/OCT/2012 , 16/NOV/2012, 26/APR/2013, 10/MAY/2013, 11/OCT/2013, 2
     Route: 042
     Dates: start: 20120516, end: 20160121
  13. OCRELIZUMAB. [Suspect]
     Active Substance: OCRELIZUMAB
     Indication: PRIMARY PROGRESSIVE MULTIPLE SCLEROSIS
     Dosage: SUBSEQUENT DOSE: 05/FEB/2016 (260 ML), 08/JUL/2016(260 ML), 22/JUL/2016(260 ML)?TWO IV INFUSIONS OF
     Route: 042
     Dates: start: 20160122
  14. OCRELIZUMAB. [Suspect]
     Active Substance: OCRELIZUMAB
     Dosage: SUBSEQUENT DOSE: 04/APR/2019(565 ML), 12/MAR/2020(565 ML)
     Route: 042
     Dates: start: 20181025
  15. ACETAMINOPHEN. [Concomitant]
     Active Substance: ACETAMINOPHEN
     Indication: PREMEDICATION
     Dosage: SUBSEQUENT DOSE ON: 28/MAY/2012, 31/OCT/2012 , 16/NOV/2012, 26/APR/2013, 10/MAY/2013, 11/OCT/2013, 2
     Dates: start: 20120516
  16. DIPHENHYDRAMINE. [Concomitant]
     Active Substance: DIPHENHYDRAMINE
     Indication: PREMEDICATION
     Dosage: SUBSEQUENT DOSE ON: 28/MAY/2012, 31/OCT/2012 , 16/NOV/2012, 26/APR/2013, 10/MAY/2013, 11/OCT/2013, 2
     Dates: start: 20120516
  17. BACLOFEN. [Concomitant]
     Active Substance: BACLOFEN
     Dosage: NEXT DOSE ON 11/JUN/2021
     Dates: start: 20210511
  18. BETAHISTINE [Concomitant]
     Active Substance: BETAHISTINE
     Dates: start: 20160218, end: 20160218
  19. OCRELIZUMAB. [Suspect]
     Active Substance: OCRELIZUMAB
     Route: 042
     Dates: start: 20170120
  20. CITALOPRAM HYDROBROMIDE. [Concomitant]
     Active Substance: CITALOPRAM HYDROBROMIDE
     Indication: DEPRESSION
     Dates: start: 20171202, end: 20180814
  21. DALTEPARIN [Concomitant]
     Active Substance: DALTEPARIN
     Dosage: 5000 OTHER, UNITS
     Dates: start: 20210502, end: 20210709
  22. COVID?19 VACCINE [Concomitant]
     Dosage: NEXT DOSE ON 7/JUL/2021
     Dates: start: 20210804, end: 20210804
  23. OCRELIZUMAB. [Suspect]
     Active Substance: OCRELIZUMAB
     Dosage: SUBSEQUENT DOSE:  17/SEP/2020
     Route: 042
     Dates: start: 20180510
  24. BETAHISTINE [Concomitant]
     Active Substance: BETAHISTINE
     Dates: start: 20170531
  25. DEXAMETHASONE. [Concomitant]
     Active Substance: DEXAMETHASONE
     Dates: start: 20210514, end: 20210523
  26. BENADRYL [Concomitant]
     Active Substance: DIPHENHYDRAMINE HYDROCHLORIDE
     Indication: PREMEDICATION
     Dates: start: 20180510
  27. BACLOFEN. [Concomitant]
     Active Substance: BACLOFEN
     Dates: start: 20180518, end: 20180521
  28. CITALOPRAM HYDROBROMIDE. [Concomitant]
     Active Substance: CITALOPRAM HYDROBROMIDE
     Dates: start: 20181109, end: 20181115
  29. CITALOPRAM HYDROBROMIDE. [Concomitant]
     Active Substance: CITALOPRAM HYDROBROMIDE
     Dates: start: 20171125, end: 20171201
  30. LEVOFLOXACIN. [Concomitant]
     Active Substance: LEVOFLOXACIN
     Dates: start: 20210514, end: 20210523

REACTIONS (1)
  - COVID-19 [Recovered/Resolved]

NARRATIVE: CASE EVENT DATE: 20210501
